FAERS Safety Report 7457066-4 (Version None)
Quarter: 2011Q2

REPORT INFORMATION
  Report Type: 
  Country: None (occurrence: None)
  Receive Date: 20110426
  Receipt Date: 20110411
  Transmission Date: 20111010
  Serious: Yes (Hospitalization)
  Sender: FDA-Public Use
  Company Number: 2011MA003689

PATIENT
  Age: 16 Year
  Sex: Male

DRUGS (3)
  1. ARIPIPRAZOLE [Concomitant]
  2. LITHIUM [Concomitant]
  3. FLUOXETINE [Suspect]
     Indication: BIPOLAR DISORDER
     Dosage: 30 MG, QD;

REACTIONS (13)
  - MYALGIA [None]
  - TACHYPNOEA [None]
  - RHABDOMYOLYSIS [None]
  - CAFFEINE CONSUMPTION [None]
  - DRUG RASH WITH EOSINOPHILIA AND SYSTEMIC SYMPTOMS [None]
  - BODY TEMPERATURE INCREASED [None]
  - EPSTEIN-BARR VIRUS TEST POSITIVE [None]
  - DRUG LEVEL BELOW THERAPEUTIC [None]
  - FATIGUE [None]
  - TACHYCARDIA [None]
  - LYMPHADENOPATHY [None]
  - SIMPLEX VIRUS TEST POSITIVE [None]
  - HEPATIC ENZYME INCREASED [None]
